FAERS Safety Report 10550114 (Version 2)
Quarter: 2014Q4

REPORT INFORMATION
  Report Type: Spontaneous
  Country: US (occurrence: US)
  Receive Date: 20141028
  Receipt Date: 20141111
  Transmission Date: 20150529
  Serious: Yes (Hospitalization, Other)
  Sender: FDA-Public Use
  Company Number: US-BIOMARINAP-US-2014-104506

PATIENT
  Sex: Female

DRUGS (1)
  1. ALDURAZYME [Suspect]
     Active Substance: LARONIDASE
     Indication: MUCOPOLYSACCHARIDOSIS I
     Dosage: 31.9 MG, QW
     Route: 042
     Dates: start: 20041206

REACTIONS (5)
  - Dyspnoea [Unknown]
  - Abdominal pain [Unknown]
  - Urinary tract obstruction [Unknown]
  - Urinary tract infection [Unknown]
  - Nephrolithiasis [Not Recovered/Not Resolved]
